FAERS Safety Report 7415151-7 (Version None)
Quarter: 2011Q2

REPORT INFORMATION
  Report Type: 
  Country: None (occurrence: None)
  Receive Date: 20110414
  Receipt Date: 20110404
  Transmission Date: 20111010
  Serious: Yes (Hospitalization)
  Sender: FDA-Public Use
  Company Number: PHHY2011FR24692

PATIENT
  Sex: Female

DRUGS (1)
  1. LEPONEX [Suspect]
     Indication: PSYCHOTIC DISORDER
     Route: 048
     Dates: start: 20101104, end: 20110214

REACTIONS (4)
  - ORTHOSTATIC HYPOTENSION [None]
  - VENTRICULAR HYPOKINESIA [None]
  - PERICARDIAL DISEASE [None]
  - MYOCARDITIS [None]
